FAERS Safety Report 12446424 (Version 1)
Quarter: 2016Q2

REPORT INFORMATION
  Report Type: Spontaneous
  Country: US (occurrence: US)
  Receive Date: 20160608
  Receipt Date: 20160608
  Transmission Date: 20160815
  Serious: No
  Sender: FDA-Public Use
  Company Number: US-BIOGEN-2016BI00236387

PATIENT
  Sex: Female

DRUGS (1)
  1. TECFIDERA [Suspect]
     Active Substance: DIMETHYL FUMARATE
     Indication: MULTIPLE SCLEROSIS
     Dosage: MAINTENANCE DOSE
     Route: 048
     Dates: start: 20160419

REACTIONS (7)
  - Hyperaesthesia [Unknown]
  - Urticaria [Unknown]
  - Diarrhoea [Unknown]
  - Flushing [Not Recovered/Not Resolved]
  - Abdominal pain [Unknown]
  - Periarthritis [Unknown]
  - Chest discomfort [Unknown]
